FAERS Safety Report 4453884-5 (Version None)
Quarter: 2004Q3

REPORT INFORMATION
  Report Type: 
  Country: None (occurrence: None)
  Receive Date: 20040920
  Receipt Date: 20040617
  Transmission Date: 20050211
  Serious: Yes (Hospitalization, Disabling)
  Sender: FDA-Public Use
  Company Number: US-MERCK-0406USA01732

PATIENT
  Age: 42 Year
  Sex: Male
  Weight: 107 kg

DRUGS (5)
  1. TYLENOL [Concomitant]
     Route: 065
     Dates: start: 20010601, end: 20040101
  2. TYLENOL W/ CODEINE NO. 3 [Concomitant]
     Indication: ROTATOR CUFF SYNDROME
     Route: 048
  3. VICODIN [Concomitant]
     Route: 065
     Dates: start: 20010601, end: 20040101
  4. ECOTRIN [Concomitant]
     Route: 065
     Dates: start: 20010601, end: 20040101
  5. VIOXX [Suspect]
     Indication: ROTATOR CUFF SYNDROME
     Route: 048
     Dates: start: 20020522, end: 20020601

REACTIONS (5)
  - BLOOD CHOLESTEROL INCREASED [None]
  - BLOOD TRIGLYCERIDES INCREASED [None]
  - HYPERTENSION [None]
  - JOINT SWELLING [None]
  - MYOCARDIAL INFARCTION [None]
